FAERS Safety Report 21084054 (Version 1)
Quarter: 2022Q3

REPORT INFORMATION
  Report Type: Spontaneous
  Country: ES (occurrence: ES)
  Receive Date: 20220714
  Receipt Date: 20220714
  Transmission Date: 20221027
  Serious: No
  Sender: FDA-Public Use
  Company Number: ES-JAZZ-2022-ES-017451

PATIENT
  Age: 18 Year
  Sex: Female

DRUGS (2)
  1. CANNABIDIOL [Suspect]
     Active Substance: CANNABIDIOL
     Indication: Product used for unknown indication
     Dosage: 2.5 MILLIGRAM/KILOGRAM/DAY
     Route: 048
  2. CANNABIDIOL [Suspect]
     Active Substance: CANNABIDIOL
     Dosage: 7.5 MILLIGRAM/KILOGRAM/DAY
     Route: 048

REACTIONS (1)
  - Weight decreased [Unknown]
